FAERS Safety Report 4950195-6 (Version None)
Quarter: 2006Q1

REPORT INFORMATION
  Report Type: 
  Country: None (occurrence: None)
  Receive Date: 20060322
  Receipt Date: 20060313
  Transmission Date: 20060701
  Serious: Yes (Hospitalization)
  Sender: FDA-Public Use
  Company Number: PHBS2006DK04143

PATIENT
  Age: 67 Year
  Sex: Male

DRUGS (4)
  1. LANSOPRAZOLE [Concomitant]
  2. LAMISIL [Suspect]
     Indication: NAIL TINEA
     Dosage: 250 MG, QD
     Route: 048
     Dates: start: 20051006, end: 20051010
  3. SOTALOL HCL [Concomitant]
  4. HJERTEMAGNYL [Concomitant]

REACTIONS (1)
  - ATRIAL FIBRILLATION [None]
